FAERS Safety Report 14266116 (Version 1)
Quarter: 2017Q4

REPORT INFORMATION
  Report Type: Spontaneous
  Country: IT (occurrence: IT)
  Receive Date: 20171209
  Receipt Date: 20171209
  Transmission Date: 20180321
  Serious: Yes (Hospitalization)
  Sender: FDA-Public Use
  Company Number: IT-CONCORDIA PHARMACEUTICALS INC.-E2B_00008713

PATIENT
  Age: 88 Year
  Sex: Female

DRUGS (1)
  1. LANOXIN [Suspect]
     Active Substance: DIGOXIN
     Dosage: ; IN TOTAL
     Dates: start: 20161004, end: 20161004

REACTIONS (4)
  - Sopor [Unknown]
  - Hyperkalaemia [Unknown]
  - Azotaemia [Unknown]
  - Hypercreatinaemia [Unknown]

NARRATIVE: CASE EVENT DATE: 20161004
